FAERS Safety Report 12185889 (Version 3)
Quarter: 2016Q1

REPORT INFORMATION
  Report Type: Spontaneous
  Country: ES (occurrence: ES)
  Receive Date: 20160317
  Receipt Date: 20160328
  Transmission Date: 20160526
  Serious: Yes (Hospitalization)
  Sender: FDA-Public Use
  Company Number: ES-BIOMARINAP-ES-2016-109222

PATIENT
  Age: 14 Year
  Sex: Male
  Weight: 30 kg

DRUGS (2)
  1. ALDURAZYME [Suspect]
     Active Substance: LARONIDASE
     Indication: MUCOPOLYSACCHARIDOSIS I
     Dosage: 100 IU/KG, QW
     Route: 042
     Dates: start: 20151014, end: 20160126
  2. ALDURAZYME [Suspect]
     Active Substance: LARONIDASE
     Dosage: 100 IU/KG, QW
     Route: 042
     Dates: start: 20160218, end: 20160303

REACTIONS (7)
  - Disorganised speech [Not Recovered/Not Resolved]
  - Mental disorder [Not Recovered/Not Resolved]
  - Paranoia [Not Recovered/Not Resolved]
  - Thinking abnormal [Not Recovered/Not Resolved]
  - Laryngitis [Unknown]
  - Mania [Not Recovered/Not Resolved]
  - Influenza [Unknown]

NARRATIVE: CASE EVENT DATE: 20160229
